FAERS Safety Report 6405930-7 (Version None)
Quarter: 2009Q4

REPORT INFORMATION
  Report Type: 
  Country: None (occurrence: None)
  Receive Date: 20091014
  Receipt Date: 20090930
  Transmission Date: 20100525
  Serious: Yes (Death, Hospitalization)
  Sender: FDA-Public Use
  Company Number: 2009AC000077

PATIENT
  Age: 77 Year
  Sex: Female

DRUGS (27)
  1. DIGOXIN [Suspect]
     Dosage: 625 MCG; QOD; PO
     Route: 048
     Dates: start: 20020123
  2. ALDACTONE [Concomitant]
  3. CORDARONE [Concomitant]
  4. POTASSIUM CHLORIDE [Concomitant]
  5. PEPCID [Concomitant]
  6. LIPITOR [Concomitant]
  7. LASIX [Concomitant]
  8. ZOLIPREM [Concomitant]
  9. TRAMADOL HCL [Concomitant]
  10. COREG [Concomitant]
  11. METOCLOPRAMIDE [Concomitant]
  12. PREVACID [Concomitant]
  13. ZOFRAN [Concomitant]
  14. MEGESTROL ACETATE [Concomitant]
  15. COUMADIN [Concomitant]
  16. PACERONE [Concomitant]
  17. GLYCOLAX [Concomitant]
  18. ALPRAZOLAM [Concomitant]
  19. NITROGLYCERIN [Concomitant]
  20. DILTIAZ ER [Concomitant]
  21. PAXIL [Concomitant]
  22. MECLIZINE [Concomitant]
  23. DIOVAN [Concomitant]
  24. OXYCOD/APAP [Concomitant]
  25. PROMETHAZINE [Concomitant]
  26. PRIMIDONE [Concomitant]
  27. ALTACE [Concomitant]

REACTIONS (21)
  - ANGINA PECTORIS [None]
  - ANOXIA [None]
  - CARDIAC FAILURE CONGESTIVE [None]
  - CARDIO-RESPIRATORY ARREST [None]
  - CARDIOGENIC SHOCK [None]
  - CONFUSIONAL STATE [None]
  - CORONARY ARTERY DISEASE [None]
  - COUGH [None]
  - DIARRHOEA [None]
  - ECONOMIC PROBLEM [None]
  - HYPERTENSION [None]
  - HYPOKALAEMIA [None]
  - MALAISE [None]
  - MITRAL VALVE INCOMPETENCE [None]
  - MULTIPLE INJURIES [None]
  - PAIN [None]
  - PARTNER STRESS [None]
  - PHARYNGITIS [None]
  - PLEURAL EFFUSION [None]
  - PULMONARY CONGESTION [None]
  - VENTRICULAR FIBRILLATION [None]
